FAERS Safety Report 10675652 (Version 1)
Quarter: 2014Q4

REPORT INFORMATION
  Report Type: Spontaneous
  Country: IT (occurrence: IT)
  Receive Date: 20141224
  Receipt Date: 20141224
  Transmission Date: 20150529
  Serious: Yes (Hospitalization)
  Sender: FDA-Public Use
  Company Number: IT-WATSON-2014-27433

PATIENT
  Age: 56 Year
  Sex: Male

DRUGS (4)
  1. OXYBUTYNIN (UNKNOWN) [Suspect]
     Active Substance: OXYBUTYNIN
     Indication: SUICIDE ATTEMPT
     Dosage: 50 MG, TOTAL
     Route: 048
     Dates: start: 20141031, end: 20141031
  2. DEPAKIN [Suspect]
     Active Substance: VALPROATE SODIUM
     Indication: SUICIDE ATTEMPT
     Dosage: 6000 MG, TOTAL
     Route: 048
     Dates: start: 20141031, end: 20141031
  3. DEPAKIN [Suspect]
     Active Substance: VALPROATE SODIUM
     Indication: SUICIDE ATTEMPT
     Dosage: 10000 MG, TOTAL
     Route: 048
     Dates: start: 20141031, end: 20141031
  4. INDERAL [Suspect]
     Active Substance: PROPRANOLOL HYDROCHLORIDE
     Indication: SUICIDE ATTEMPT
     Dosage: 800 MG, TOTAL
     Route: 048
     Dates: start: 20141031, end: 20141031

REACTIONS (4)
  - Suicide attempt [Unknown]
  - Sopor [Unknown]
  - Overdose [Unknown]
  - Drug abuse [Unknown]

NARRATIVE: CASE EVENT DATE: 20141031
